FAERS Safety Report 9281678 (Version 2)
Quarter: 2013Q4

REPORT INFORMATION
  Report Type: Report from Study
  Country: US (occurrence: US)
  Receive Date: 20130509
  Receipt Date: 20131129
  Transmission Date: 20140711
  Serious: Yes (Other)
  Sender: FDA-Public Use
  Company Number: US-SANOFI-AVENTIS-2013SA026400

PATIENT
  Age: 61 Year
  Sex: Female
  Weight: 93.4 kg

DRUGS (5)
  1. AUBAGIO [Suspect]
     Indication: MULTIPLE SCLEROSIS
     Route: 048
     Dates: start: 20130128, end: 20130322
  2. AUBAGIO [Suspect]
     Indication: RELAPSING-REMITTING MULTIPLE SCLEROSIS
     Route: 048
     Dates: start: 20130128, end: 20130322
  3. LISINOPRIL [Concomitant]
     Indication: HYPERTENSION
     Route: 065
     Dates: start: 2007
  4. LABETALOL [Concomitant]
     Indication: HYPERTENSION
     Route: 065
     Dates: start: 2007
  5. JANUMET [Concomitant]
     Indication: TYPE 2 DIABETES MELLITUS
     Dosage: DOSE: 50/500 MG
     Dates: start: 20110530

REACTIONS (10)
  - Hypertension [Recovered/Resolved]
  - Blood glucose increased [Not Recovered/Not Resolved]
  - Influenza [Recovered/Resolved]
  - Respiratory disorder [Not Recovered/Not Resolved]
  - Cough [Not Recovered/Not Resolved]
  - Bronchitis [Recovered/Resolved]
  - Hepatic enzyme increased [Recovered/Resolved]
  - Diarrhoea [Recovered/Resolved]
  - Nausea [Not Recovered/Not Resolved]
  - Sinusitis [Recovered/Resolved]
